FAERS Safety Report 4864221-6 (Version None)
Quarter: 2005Q4

REPORT INFORMATION
  Report Type: 
  Country: None (occurrence: None)
  Receive Date: 20051220
  Receipt Date: 20051220
  Transmission Date: 20060501
  Serious: Yes (Other)
  Sender: FDA-Public Use
  Company Number: None

PATIENT
  Age: 37 Year
  Sex: Female
  Weight: 57.6068 kg

DRUGS (3)
  1. PAXIL CR [Suspect]
     Indication: DEPRESSION
     Dosage: 1 DAILY PO
     Route: 048
     Dates: start: 20050601, end: 20051101
  2. PAROXETINE HCL [Suspect]
     Indication: ANTIDEPRESSANT THERAPY
     Dosage: 10MG DAILY PO
     Route: 048
     Dates: start: 20051206, end: 20051216
  3. PAROXETINE HCL [Suspect]
     Indication: DRUG WITHDRAWAL SYNDROME
     Dosage: 10MG DAILY PO
     Route: 048
     Dates: start: 20051206, end: 20051216

REACTIONS (3)
  - ADVERSE EVENT [None]
  - DRUG DEPENDENCE [None]
  - FEELING ABNORMAL [None]
